FAERS Safety Report 6446738-6 (Version None)
Quarter: 2009Q4

REPORT INFORMATION
  Report Type: 
  Country: None (occurrence: None)
  Receive Date: 20091119
  Receipt Date: 20091106
  Transmission Date: 20100525
  Serious: No
  Sender: FDA-Public Use
  Company Number: US-B.I. PHARMACEUTICALS,INC./RIDGEFIELD-2009-BP-13004BP

PATIENT
  Sex: Male

DRUGS (16)
  1. FLOMAX [Suspect]
     Indication: BLADDER CANCER
     Dosage: 0.8 MG
     Route: 048
     Dates: start: 20040101
  2. VITAMINS [Concomitant]
     Indication: PROPHYLAXIS
  3. VCG TREATMENT [Concomitant]
     Indication: BLADDER CANCER
  4. LEXAPRO [Concomitant]
     Indication: MOOD ALTERED
  5. LEXAPRO [Concomitant]
     Indication: DEMENTIA
  6. PRANDIN [Concomitant]
     Indication: DIABETES MELLITUS
  7. LASIX [Concomitant]
     Indication: CARDIAC DISORDER
  8. NAMENDA [Concomitant]
     Indication: DEMENTIA
  9. ASPIRIN [Concomitant]
     Indication: CARDIAC DISORDER
  10. METOPROLOL [Concomitant]
     Indication: HYPERTENSION
  11. LISINOPRIL [Concomitant]
     Indication: HYPERTENSION
  12. DIGOXIN [Concomitant]
     Indication: CARDIAC DISORDER
  13. ZOCOR [Concomitant]
     Indication: BLOOD CHOLESTEROL INCREASED
  14. RAZADYNE [Concomitant]
     Indication: DEMENTIA
  15. REQUIP [Concomitant]
     Indication: RESTLESS LEGS SYNDROME
  16. REQUIP [Concomitant]
     Indication: PARKINSON'S DISEASE

REACTIONS (2)
  - POLYURIA [None]
  - RHINORRHOEA [None]
